FAERS Safety Report 20613353 (Version 1)
Quarter: 2022Q1

REPORT INFORMATION
  Report Type: Spontaneous
  Country: CA (occurrence: CA)
  Receive Date: 20220318
  Receipt Date: 20220318
  Transmission Date: 20220424
  Serious: Yes (Death, Other)
  Sender: FDA-Public Use
  Company Number: CA-SA-SAC20220316001868

PATIENT
  Age: 50 Year
  Sex: Male

DRUGS (13)
  1. IRBESARTAN [Suspect]
     Active Substance: IRBESARTAN
  2. ACETAMINOPHEN [Suspect]
     Active Substance: ACETAMINOPHEN
  3. CITALOPRAM [Suspect]
     Active Substance: CITALOPRAM HYDROBROMIDE
  4. CLONAZEPAM [Suspect]
     Active Substance: CLONAZEPAM
  5. DOCUSATE SODIUM [Suspect]
     Active Substance: DOCUSATE SODIUM
  6. LEVETIRACETAM [Suspect]
     Active Substance: LEVETIRACETAM
  7. LITHIUM [Suspect]
     Active Substance: LITHIUM
  8. MORPHINE SULFATE [Suspect]
     Active Substance: MORPHINE SULFATE
  9. TIZANIDINE [Suspect]
     Active Substance: TIZANIDINE
  10. TOPIRAMATE [Suspect]
     Active Substance: TOPIRAMATE
  11. TRIHEXYPHENIDYL [Suspect]
     Active Substance: TRIHEXYPHENIDYL
  12. VALPROIC ACID [Suspect]
     Active Substance: VALPROIC ACID
  13. BUTYLSCOPOLAMINE BROMIDE [Suspect]
     Active Substance: BUTYLSCOPOLAMINE BROMIDE

REACTIONS (4)
  - Accidental death [Fatal]
  - Toxicity to various agents [Fatal]
  - Failure to suspend medication [Fatal]
  - Wrong patient received product [Fatal]
